FAERS Safety Report 13680901 (Version 3)
Quarter: 2017Q3

REPORT INFORMATION
  Report Type: Spontaneous
  Country: GB (occurrence: GB)
  Receive Date: 20170623
  Receipt Date: 20170929
  Transmission Date: 20171127
  Serious: Yes (Other)
  Sender: FDA-Public Use
  Company Number: GB-SUN PHARMACEUTICAL INDUSTRIES LTD-2017RR-143169

PATIENT
  Age: 44 Year
  Sex: Female

DRUGS (1)
  1. RISPERIDONE. [Suspect]
     Active Substance: RISPERIDONE
     Indication: SCHIZOPHRENIA
     Dosage: 3 MG,
     Route: 048
     Dates: start: 2004, end: 2007

REACTIONS (2)
  - Blood prolactin increased [Unknown]
  - Amenorrhoea [Recovered/Resolved]
